FAERS Safety Report 10075982 (Version 1)
Quarter: 2014Q2

REPORT INFORMATION
  Report Type: Spontaneous
  Country: US (occurrence: None)
  Receive Date: 20140411
  Receipt Date: 20140411
  Transmission Date: 20141212
  Serious: Yes (Hospitalization)
  Sender: FDA-Public Use
  Company Number: None

PATIENT
  Age: 57 Year
  Sex: Male
  Weight: 84.37 kg

DRUGS (1)
  1. XIAFLEX [Suspect]
     Indication: DUPUYTREN^S CONTRACTURE
     Dates: start: 20131111, end: 20131111

REACTIONS (14)
  - Injection site pain [None]
  - Inadequate aseptic technique in use of product [None]
  - Pain in extremity [None]
  - Peripheral swelling [None]
  - Middle insomnia [None]
  - Immune system disorder [None]
  - Drug intolerance [None]
  - Impaired work ability [None]
  - Economic problem [None]
  - Discomfort [None]
  - Cardiovascular insufficiency [None]
  - Temperature intolerance [None]
  - Localised infection [None]
  - Streptococcal infection [None]
